FAERS Safety Report 24335288 (Version 2)
Quarter: 2024Q3

REPORT INFORMATION
  Report Type: Spontaneous
  Country: JP (occurrence: JP)
  Receive Date: 20240918
  Receipt Date: 20240924
  Transmission Date: 20241016
  Serious: Yes (Other)
  Sender: JOHNSON AND JOHNSON
  Company Number: JP-JNJFOC-20240946699

PATIENT
  Age: 4 Decade
  Sex: Male

DRUGS (7)
  1. INVEGA [Suspect]
     Active Substance: PALIPERIDONE
     Indication: Schizophrenia
     Route: 048
     Dates: end: 202102
  2. ABILIFY [Concomitant]
     Active Substance: ARIPIPRAZOLE
     Indication: Schizophrenia
     Route: 065
     Dates: end: 202102
  3. BLONANSERIN [Concomitant]
     Active Substance: BLONANSERIN
     Indication: Schizophrenia
     Route: 065
     Dates: end: 202102
  4. LAMICTAL [Concomitant]
     Active Substance: LAMOTRIGINE
     Route: 048
  5. QUETIAPINE FUMARATE [Concomitant]
     Active Substance: QUETIAPINE FUMARATE
     Route: 048
  6. REXULTI [Concomitant]
     Active Substance: BREXPIPRAZOLE
     Indication: Schizophrenia
     Route: 048
     Dates: start: 202102
  7. ZYPREXA [Concomitant]
     Active Substance: OLANZAPINE
     Indication: Schizophrenia
     Route: 065
     Dates: start: 202102

REACTIONS (2)
  - Hallucination, auditory [Recovering/Resolving]
  - Malaise [Not Recovered/Not Resolved]
